FAERS Safety Report 6354456-8 (Version None)
Quarter: 2009Q3

REPORT INFORMATION
  Report Type: 
  Country: None (occurrence: None)
  Receive Date: 20090914
  Receipt Date: 20090901
  Transmission Date: 20100115
  Serious: Yes (Other)
  Sender: FDA-Public Use
  Company Number: US-AMGEN-KDL362734

PATIENT
  Sex: Female

DRUGS (3)
  1. ENBREL [Suspect]
     Indication: RHEUMATOID ARTHRITIS
     Route: 058
     Dates: start: 20060716, end: 20090807
  2. ENBREL [Suspect]
     Indication: OSTEOARTHRITIS
  3. METHOTREXATE [Concomitant]
     Route: 048

REACTIONS (6)
  - GAIT DISTURBANCE [None]
  - HYPOAESTHESIA [None]
  - MOTOR DYSFUNCTION [None]
  - NEUROPATHY PERIPHERAL [None]
  - PAIN IN EXTREMITY [None]
  - PARAESTHESIA [None]
